FAERS Safety Report 5452642-2 (Version None)
Quarter: 2007Q3

REPORT INFORMATION
  Report Type: 
  Country: None (occurrence: None)
  Receive Date: 20070914
  Receipt Date: 20070912
  Transmission Date: 20080115
  Serious: Yes (Other)
  Sender: FDA-Public Use
  Company Number: GB-BRISTOL-MYERS SQUIBB COMPANY-13905104

PATIENT

DRUGS (6)
  1. IFOSFAMIDE [Suspect]
     Indication: NON-SMALL CELL LUNG CANCER
     Dosage: 1 DOSAGE FORM=1 G/M2
  2. CARBOPLATIN [Suspect]
     Indication: NON-SMALL CELL LUNG CANCER
  3. CISPLATIN [Suspect]
     Indication: NON-SMALL CELL LUNG CANCER
  4. MITOMYCIN [Suspect]
     Indication: NON-SMALL CELL LUNG CANCER
  5. DOCETAXEL [Suspect]
     Indication: NON-SMALL CELL LUNG CANCER
  6. VINBLASTINE SULFATE [Suspect]
     Indication: NON-SMALL CELL LUNG CANCER

REACTIONS (3)
  - INFECTION [None]
  - MUCOSAL INFLAMMATION [None]
  - NEUTROPENIA [None]
